FAERS Safety Report 25226241 (Version 2)
Quarter: 2025Q4

REPORT INFORMATION
  Report Type: Spontaneous
  Country: IN (occurrence: IN)
  Receive Date: 20250422
  Receipt Date: 20251008
  Transmission Date: 20260118
  Serious: Yes (Life-Threatening, Other)
  Sender: PFIZER
  Company Number: IN-PFIZER INC-PV202500046246

PATIENT
  Age: 22 Year
  Sex: Male

DRUGS (4)
  1. METHYLPREDNISOLONE SODIUM SUCCINATE [Suspect]
     Active Substance: METHYLPREDNISOLONE SODIUM SUCCINATE
     Dosage: 1 G, DAILY
     Route: 042
  2. RITUXIMAB [Suspect]
     Active Substance: RITUXIMAB
     Indication: Thrombotic thrombocytopenic purpura
     Dosage: 375 MG/M2, WEEKLY
  3. PREDNISOLONE [Suspect]
     Active Substance: PREDNISOLONE
     Indication: Thrombotic thrombocytopenic purpura
     Dosage: 60 MG, DAILY (GRADUALLY TAPERED)
     Route: 048
  4. LEVETIRACETAM [Suspect]
     Active Substance: LEVETIRACETAM
     Indication: Thrombotic thrombocytopenic purpura
     Dosage: 1 G, DAILY
     Route: 042

REACTIONS (1)
  - Drug ineffective [Unknown]
